FAERS Safety Report 5493526-3 (Version None)
Quarter: 2007Q4

REPORT INFORMATION
  Report Type: 
  Country: None (occurrence: None)
  Receive Date: 20071023
  Receipt Date: 20071010
  Transmission Date: 20080405
  Serious: Yes (Hospitalization)
  Sender: FDA-Public Use
  Company Number: US-SHR-US-2007-033587

PATIENT
  Age: 32 Year
  Sex: Female
  Weight: 63.946 kg

DRUGS (7)
  1. BETASERON [Suspect]
     Indication: RELAPSING-REMITTING MULTIPLE SCLEROSIS
     Dosage: 8 MIU, EVERY 2D
     Route: 058
     Dates: start: 20070429
  2. FOSAMAX [Concomitant]
     Dosage: 10 MG, 2X/DAY
     Dates: start: 20070910
  3. DECADRON                                /CAN/ [Concomitant]
     Dosage: .075 MG, UNK
     Dates: start: 20070910
  4. VALIUM [Concomitant]
     Dosage: 5 MG, UNK
     Dates: start: 20070910
  5. PEPCID [Concomitant]
     Dosage: 20 MG, 1X/DAY
     Dates: start: 20070910
  6. JOLESSA [Concomitant]
     Dosage: 1.5 MG/D, UNK
  7. LUNESTA [Concomitant]
     Dosage: 2 MG, BED T.

REACTIONS (4)
  - GAIT DISTURBANCE [None]
  - HYPOAESTHESIA [None]
  - MUSCLE SPASMS [None]
  - PAIN [None]
